FAERS Safety Report 4417029-X (Version None)
Quarter: 2004Q3

REPORT INFORMATION
  Report Type: 
  Country: None (occurrence: None)
  Receive Date: 20040802
  Receipt Date: 20040728
  Transmission Date: 20050211
  Serious: Yes (Hospitalization)
  Sender: FDA-Public Use
  Company Number: 2004222287US

PATIENT
  Age: 85 Year
  Sex: Male
  Weight: 72.6 kg

DRUGS (4)
  1. CELEBREX [Suspect]
     Indication: ARTHRITIS
     Dosage: 200 MG
     Dates: start: 20000614
  2. PRAVACHOL [Concomitant]
  3. ALLEGRA [Concomitant]
  4. ATENOLOL [Concomitant]

REACTIONS (2)
  - BURSITIS [None]
  - CONDITION AGGRAVATED [None]
